FAERS Safety Report 24928892 (Version 1)
Quarter: 2025Q1

REPORT INFORMATION
  Report Type: Spontaneous
  Country: US (occurrence: US)
  Receive Date: 20250205
  Receipt Date: 20250205
  Transmission Date: 20250408
  Serious: No
  Sender: pharmaAND
  Company Number: US-Pharmaand-2024000138

PATIENT
  Age: 57 Year
  Sex: Male

DRUGS (1)
  1. RUBRACA [Suspect]
     Active Substance: RUCAPARIB CAMSYLATE
     Indication: Ductal adenocarcinoma of pancreas
     Dosage: 600 MG 2 TIMES A DAY
     Route: 048
     Dates: start: 202402

REACTIONS (4)
  - Pyrexia [Recovered/Resolved]
  - Vomiting [Unknown]
  - Diarrhoea [Unknown]
  - Off label use [Unknown]

NARRATIVE: CASE EVENT DATE: 20240201
